FAERS Safety Report 8800155 (Version 2)
Quarter: 2015Q2

REPORT INFORMATION
  Report Type: Report from Study
  Country: US (occurrence: US)
  Receive Date: 20120921
  Receipt Date: 20150407
  Transmission Date: 20150821
  Serious: Yes (Death)
  Sender: FDA-Public Use
  Company Number: US-ROCHE-1127690

PATIENT
  Sex: Male

DRUGS (11)
  1. TOPROL XL [Concomitant]
     Active Substance: METOPROLOL SUCCINATE
     Route: 065
  2. ATIVAN [Concomitant]
     Active Substance: LORAZEPAM
     Indication: BLOOD PRESSURE
     Route: 042
  3. LISINOPRIL. [Concomitant]
     Active Substance: LISINOPRIL
     Route: 065
  4. DEXAMETHASONE. [Concomitant]
     Active Substance: DEXAMETHASONE
     Route: 042
  5. KEPPRA [Concomitant]
     Active Substance: LEVETIRACETAM
     Route: 042
  6. AVASTIN [Suspect]
     Active Substance: BEVACIZUMAB
     Indication: BRAIN NEOPLASM MALIGNANT
     Route: 042
     Dates: start: 20061019
  7. TEMODAR [Concomitant]
     Active Substance: TEMOZOLOMIDE
     Route: 065
  8. IRINOTECAN [Concomitant]
     Active Substance: IRINOTECAN
     Route: 065
  9. ZOFRAN [Concomitant]
     Active Substance: ONDANSETRON HYDROCHLORIDE
     Route: 042
  10. IRINOTECAN [Concomitant]
     Active Substance: IRINOTECAN
     Route: 065
  11. ATROPINE [Concomitant]
     Active Substance: ATROPINE
     Route: 058

REACTIONS (5)
  - Death [Fatal]
  - Hemianopia homonymous [Unknown]
  - Hypertension [Unknown]
  - Dizziness [Unknown]
  - Upper respiratory tract infection [Unknown]
